FAERS Safety Report 9447864 (Version 1)
Quarter: 2013Q3

REPORT INFORMATION
  Report Type: Spontaneous
  Country: US (occurrence: None)
  Receive Date: 20130807
  Receipt Date: 20130807
  Transmission Date: 20140515
  Serious: Yes (Life-Threatening, Other)
  Sender: FDA-Public Use
  Company Number: None

PATIENT
  Age: 82 Year
  Sex: Male
  Weight: 63.5 kg

DRUGS (4)
  1. JANUVIA 100 MG MERCK [Suspect]
     Indication: DIABETES MELLITUS MANAGEMENT
     Dosage: ONE PILL QD ORAL
     Route: 048
     Dates: start: 20120607, end: 20130408
  2. METFORMIN [Concomitant]
  3. BENAZEPRIL [Concomitant]
  4. ATORVASTATIN [Concomitant]

REACTIONS (1)
  - Pancreatic carcinoma [None]
